APPROVED DRUG PRODUCT: VERSAPEN
Active Ingredient: HETACILLIN
Strength: EQ 112.5MG AMPICIL/ML
Dosage Form/Route: FOR SUSPENSION;ORAL
Application: N050060 | Product #003
Applicant: BRISTOL LABORATORIES INC DIV BRISTOL MYERS CO
Approved: Approved Prior to Jan 1, 1982 | RLD: No | RS: No | Type: DISCN